FAERS Safety Report 11013746 (Version 2)
Quarter: 2015Q2

REPORT INFORMATION
  Report Type: Spontaneous
  Country: US (occurrence: US)
  Receive Date: 20150412
  Receipt Date: 20150526
  Transmission Date: 20150821
  Serious: No
  Sender: FDA-Public Use
  Company Number: US-JNJFOC-20130812766

PATIENT
  Age: 75 Year
  Sex: Male

DRUGS (4)
  1. PANCREAZE [Suspect]
     Active Substance: PANCRELIPASE
     Indication: PANCREATIC ENZYMES DECREASED
     Route: 048
     Dates: start: 20130701
  2. DIPHENOXYLATE AND ATROPINE [Concomitant]
     Indication: DIARRHOEA
     Route: 048
     Dates: start: 2013
  3. ZOLOFT [Concomitant]
     Active Substance: SERTRALINE HYDROCHLORIDE
     Indication: ANTIDEPRESSANT THERAPY
     Dosage: BEGAN USE 20 YEARS AGO
     Route: 048
  4. ZOCOR [Concomitant]
     Active Substance: SIMVASTATIN
     Indication: BLOOD CHOLESTEROL
     Dosage: BEGAN USE 20 YEARS AGO
     Route: 048

REACTIONS (2)
  - Abnormal loss of weight [Not Recovered/Not Resolved]
  - Diarrhoea [Unknown]

NARRATIVE: CASE EVENT DATE: 201307
